FAERS Safety Report 5474121-9 (Version None)
Quarter: 2007Q3

REPORT INFORMATION
  Report Type: 
  Country: None (occurrence: None)
  Receive Date: 20070830
  Receipt Date: 20070407
  Transmission Date: 20080115
  Serious: Yes (Life-Threatening, Hospitalization, Disabling)
  Sender: FDA-Public Use
  Company Number: 213237

PATIENT
  Age: 25 Year
  Sex: Female

DRUGS (7)
  1. XOLAIR [Suspect]
     Indication: ASTHMA
     Dosage: 300 MG, 1/MONTH, SUBCUTANEOUS
     Route: 058
     Dates: start: 20050107, end: 20050307
  2. LEVAQUIN [Concomitant]
  3. ADVAIR DISKUS 100/50 [Concomitant]
  4. ALBUTEROL (ALBUTEROL/ALBUTEROL SULFATE) [Concomitant]
  5. PULMICORT [Concomitant]
  6. XOPENEX [Concomitant]
  7. ASTELIN [Concomitant]

REACTIONS (2)
  - ANAPHYLACTIC REACTION [None]
  - CHEST DISCOMFORT [None]
